FAERS Safety Report 10250043 (Version 2)
Quarter: 2014Q2

REPORT INFORMATION
  Report Type: Spontaneous
  Country: US (occurrence: US)
  Receive Date: 20140620
  Receipt Date: 20140620
  Transmission Date: 20141212
  Serious: Yes (Hospitalization)
  Sender: FDA-Public Use
  Company Number: US-BRISTOL-MYERS SQUIBB COMPANY-20603726

PATIENT
  Age: 81 Year
  Sex: Male
  Weight: 95.24 kg

DRUGS (23)
  1. ELIQUIS [Suspect]
     Indication: CEREBROVASCULAR ACCIDENT PROPHYLAXIS
     Dosage: INTERRUPTED: 28MAR2014
     Dates: start: 20140325, end: 20140328
  2. VITAMIN [Concomitant]
     Dosage: DAILY VITAMIN FORMULA.?TAB
     Route: 048
  3. CITRACAL + D [Concomitant]
  4. HYDROCHLOROTHIAZIDE [Concomitant]
     Dosage: 1/2 EVERY MORNING
     Route: 048
  5. TRAMADOL HCL [Concomitant]
     Dosage: TAB
     Route: 048
  6. SPIRIVA [Concomitant]
     Dosage: HANDIHALER INHALATION CAPSULE CONVENTIONAL
  7. EPINEPHRINE [Concomitant]
     Dosage: EPINEPHRINE HCL INJECTION
  8. HYDROCODONE + ACETAMINOPHEN [Concomitant]
     Dosage: 1DF = 5-500MG
     Route: 048
  9. VITAMIN B COMPLEX [Concomitant]
     Dosage: 1 EVERY MORNING
  10. INTEGRA PLUS [Concomitant]
     Dosage: CAPSULE CONVENTIONAL
     Route: 048
  11. LORATADINE [Concomitant]
     Dosage: TAB
     Route: 048
  12. ATORVASTATIN CALCIUM [Concomitant]
     Dosage: TAB
     Route: 048
  13. GABAPENTIN [Concomitant]
     Dosage: TAB
     Route: 048
  14. METOPROLOL TARTRATE [Concomitant]
     Dosage: TAB.?1/2 TWO TIMES A DAY
     Route: 048
  15. INDOMETHACIN [Concomitant]
     Dosage: CAPSULE CONVENTIONAL
     Route: 048
  16. ALBUTEROL SULFATE [Concomitant]
     Dosage: 1DF = 2.5MG/3ML.?INHALATION NEBULIZATION SOLUTION.?STR: 0.083%.
  17. FISH OIL [Concomitant]
     Dosage: CAPSULE CONVENTIONAL
     Route: 048
  18. VITAMIN E [Concomitant]
  19. VITAMIN B12 [Concomitant]
     Dosage: TAB
     Route: 048
  20. LISINOPRIL [Concomitant]
     Dosage: 1/2 TWO TIMES A DAY
     Route: 048
  21. OMEPRAZOLE [Concomitant]
     Dosage: ENTERIC COATED TAB
     Route: 048
  22. FLOMAX [Concomitant]
     Dosage: CAPSULE CONVENTIONAL.?2 EVERY MORNING
     Route: 048
  23. WARFARIN SODIUM [Concomitant]
     Dosage: TAB
     Route: 048

REACTIONS (2)
  - Haemarthrosis [Recovering/Resolving]
  - Drug hypersensitivity [Recovering/Resolving]
